FAERS Safety Report 8882013 (Version 3)
Quarter: 2012Q4

REPORT INFORMATION
  Report Type: 
  Country: US (occurrence: US)
  Receive Date: 20121104
  Receipt Date: 20121108
  Transmission Date: 20130627
  Serious: Yes (Other)
  Sender: FDA-Public Use
  Company Number: US-JNJFOC-20121016910

PATIENT
  Sex: Female
  Weight: 74.39 kg

DRUGS (3)
  1. ELMIRON [Suspect]
     Indication: CYSTITIS INTERSTITIAL
     Route: 048
     Dates: start: 1997
  2. ELMIRON [Suspect]
     Indication: CYSTITIS INTERSTITIAL
     Route: 048
  3. ELMIRON [Suspect]
     Indication: CYSTITIS INTERSTITIAL
     Route: 048
     Dates: start: 1989, end: 1997

REACTIONS (4)
  - Fibromyalgia [Not Recovered/Not Resolved]
  - Increased tendency to bruise [Recovering/Resolving]
  - Exposure during pregnancy [Recovered/Resolved]
  - Bladder pain [Recovered/Resolved]
